FAERS Safety Report 15234588 (Version 3)
Quarter: 2019Q4

REPORT INFORMATION
  Report Type: Report from Study
  Country: None (occurrence: NL)
  Receive Date: 20180803
  Receipt Date: 20191009
  Transmission Date: 20200122
  Serious: Yes (Other)
  Sender: FDA-Public Use
  Company Number: NL-ABBVIE-17K-114-1996494-00

PATIENT
  Sex: Female

DRUGS (2)
  1. DUODOPA [Suspect]
     Active Substance: CARBIDOPA\LEVODOPA
     Indication: PARKINSON^S DISEASE
     Dosage: MD:10, CD 3.7, EX 2.5
     Route: 050
     Dates: start: 20100310
  2. LACTULOSE. [Concomitant]
     Active Substance: LACTULOSE
     Indication: DEFAECATION URGENCY
     Dosage: EVERY DAY OR EVERY OTHER DAY

REACTIONS (9)
  - Drug dependence [Not Recovered/Not Resolved]
  - Fall [Recovering/Resolving]
  - Weight increased [Not Recovered/Not Resolved]
  - Wrong technique in device usage process [Unknown]
  - Stoma site pain [Recovering/Resolving]
  - Hyperkinesia [Recovering/Resolving]
  - Bacterial test [Recovered/Resolved]
  - Stoma site erythema [Recovered/Resolved]
  - Stoma site pain [Recovered/Resolved]
